FAERS Safety Report 9725513 (Version 2)
Quarter: 2013Q4

REPORT INFORMATION
  Report Type: Spontaneous
  Country: CN (occurrence: CN)
  Receive Date: 20131203
  Receipt Date: 20131204
  Transmission Date: 20140711
  Serious: Yes (Life-Threatening, Other)
  Sender: FDA-Public Use
  Company Number: PHHY2013CN138103

PATIENT
  Age: 60 Year
  Sex: Male
  Weight: 53 kg

DRUGS (1)
  1. GLIVEC [Suspect]
     Indication: CHRONIC MYELOID LEUKAEMIA
     Dosage: 400 MG, QD
     Route: 048
     Dates: start: 20130919, end: 20131022

REACTIONS (4)
  - Drug-induced liver injury [Recovering/Resolving]
  - Dermatitis exfoliative [Recovering/Resolving]
  - Gastrointestinal haemorrhage [Recovered/Resolved]
  - Haematochezia [Unknown]
